FAERS Safety Report 5622000-6 (Version None)
Quarter: 2008Q1

REPORT INFORMATION
  Report Type: 
  Country: None (occurrence: None)
  Receive Date: 20080206
  Receipt Date: 20071221
  Transmission Date: 20080703
  Serious: Yes (Hospitalization)
  Sender: FDA-Public Use
  Company Number: 805#1#2007-00066

PATIENT
  Age: 66 Year
  Sex: Female

DRUGS (13)
  1. ALPROSTADIL [Suspect]
     Indication: VASCULAR SHUNT
     Dosage: 40 MCG INTRAVENOUS DRIP : 80 MCG INTRAVENOUS DRIP : 40 MCG INTRAVENOUS DRIP
     Route: 041
     Dates: start: 20071212, end: 20071212
  2. ALPROSTADIL [Suspect]
     Indication: VASCULAR SHUNT
     Dosage: 40 MCG INTRAVENOUS DRIP : 80 MCG INTRAVENOUS DRIP : 40 MCG INTRAVENOUS DRIP
     Route: 041
     Dates: start: 20071213, end: 20071213
  3. ALPROSTADIL [Suspect]
     Indication: VASCULAR SHUNT
     Dosage: 40 MCG INTRAVENOUS DRIP : 80 MCG INTRAVENOUS DRIP : 40 MCG INTRAVENOUS DRIP
     Route: 041
     Dates: start: 20071214, end: 20071214
  4. CEFAZOLIN SODIUM [Suspect]
     Dosage: ORAL
     Route: 048
  5. CHARCOAL, ACTIVATED (CHARCOAL, ACTIVATED) [Concomitant]
  6. FUROSEMIDE [Concomitant]
  7. LAFUTIDINE [Concomitant]
  8. ALFACALCIDOL (ALFACALCIDOL) [Concomitant]
  9. AMLODIPINE BESYLATE [Concomitant]
  10. FERROUS CITRATE [Concomitant]
  11. ARGAMATE (CALCIUM POLYSTYRENE SULFONATE) [Concomitant]
  12. PREDNISOLONE (PREDNISOLONE) [Concomitant]
  13. KREMEZIN (CHARCOAL, ACTIVATED) [Concomitant]

REACTIONS (4)
  - ARTHRALGIA [None]
  - C-REACTIVE PROTEIN INCREASED [None]
  - GAIT DISTURBANCE [None]
  - MUSCLE SPASMS [None]
